FAERS Safety Report 5067836-8 (Version None)
Quarter: 2006Q3

REPORT INFORMATION
  Report Type: 
  Country: None (occurrence: None)
  Receive Date: 20060717
  Receipt Date: 20051006
  Transmission Date: 20061208
  Serious: Yes (Death, Hospitalization)
  Sender: FDA-Public Use
  Company Number: 2005-10-0540

PATIENT
  Sex: Female

DRUGS (4)
  1. INTEGRILIN [Suspect]
     Dosage: INTRAVENOUS
     Route: 042
  2. ASPIRIN [Suspect]
  3. HEPARIN [Suspect]
  4. PLAVIX [Suspect]

REACTIONS (1)
  - HAEMORRHAGE [None]
